FAERS Safety Report 12354798 (Version 1)
Quarter: 2016Q2

REPORT INFORMATION
  Report Type: Spontaneous
  Country: US (occurrence: US)
  Receive Date: 20160511
  Receipt Date: 20160511
  Transmission Date: 20160815
  Serious: Yes (Other)
  Sender: FDA-Public Use
  Company Number: US-MYLANLABS-2016M1013151

PATIENT
  Sex: Female
  Weight: 58.96 kg

DRUGS (2)
  1. PROMETRIUM [Suspect]
     Active Substance: PROGESTERONE
     Indication: MENOPAUSE
     Dosage: 100 MG, QD
     Route: 048
     Dates: start: 2004, end: 2008
  2. ESTRADIOL. [Suspect]
     Active Substance: ESTRADIOL
     Indication: MENOPAUSE
     Dosage: 1 MG, QD
     Route: 048
     Dates: start: 2004, end: 2008

REACTIONS (1)
  - Breast cancer stage III [Recovered/Resolved]

NARRATIVE: CASE EVENT DATE: 2013
